FAERS Safety Report 7795135-X (Version None)
Quarter: 2011Q4

REPORT INFORMATION
  Report Type: 
  Country: None (occurrence: None)
  Receive Date: 20111004
  Receipt Date: 20110926
  Transmission Date: 20120403
  Serious: Yes (Other)
  Sender: FDA-Public Use
  Company Number: US-JNJFOC-20101002827

PATIENT
  Sex: Female
  Weight: 77.11 kg

DRUGS (4)
  1. PREDNISONE [Concomitant]
     Indication: EUSTACHIAN TUBE DISORDER
     Route: 048
     Dates: start: 20101001
  2. PREDNISONE [Concomitant]
     Route: 048
     Dates: start: 20100101
  3. EFFEXOR [Concomitant]
     Indication: DEPRESSION
     Route: 048
     Dates: start: 20091201, end: 20100901
  4. LEVAQUIN [Suspect]
     Indication: SINUSITIS
     Route: 048
     Dates: start: 20101005, end: 20101007

REACTIONS (3)
  - NAIL DISCOLOURATION [None]
  - EAR PAIN [None]
  - SKIN DISCOLOURATION [None]
